FAERS Safety Report 20450692 (Version 1)
Quarter: 2022Q1

REPORT INFORMATION
  Report Type: Spontaneous
  Country: US (occurrence: US)
  Receive Date: 20220209
  Receipt Date: 20220209
  Transmission Date: 20220423
  Serious: Yes (Other)
  Sender: FDA-Public Use
  Company Number: US-TAKEDA-2022TUS007666

PATIENT
  Sex: Female
  Weight: 73 kg

DRUGS (8)
  1. LIALDA [Suspect]
     Active Substance: MESALAMINE
     Indication: Colitis ulcerative
     Dosage: 1.2 GRAM, BID
     Route: 065
     Dates: start: 201610
  2. ZINC [Concomitant]
     Active Substance: ZINC
     Dosage: 25 MILLIGRAM
  3. FAMVIR [Concomitant]
     Active Substance: FAMCICLOVIR
  4. VITAMIN D [Concomitant]
     Active Substance: VITAMIN D NOS
     Dosage: 2000 INTERNATIONAL UNIT
  5. COENZYME Q10 [Concomitant]
     Active Substance: DIETARY SUPPLEMENT\UBIDECARENONE
     Dosage: 100 MILLIGRAM
  6. VITAMINS [Concomitant]
     Active Substance: VITAMINS
  7. MILK OF MAGNESIA [Concomitant]
     Active Substance: MAGNESIUM HYDROXIDE
  8. COLACE [Concomitant]
     Active Substance: DOCUSATE SODIUM
     Dosage: 400 MILLIGRAM, QD

REACTIONS (2)
  - Immunodeficiency [Unknown]
  - Product physical issue [Unknown]
